FAERS Safety Report 5443527-6 (Version None)
Quarter: 2007Q3

REPORT INFORMATION
  Report Type: 
  Country: None (occurrence: None)
  Receive Date: 20070730
  Receipt Date: 20070323
  Transmission Date: 20080115
  Serious: Yes (Life-Threatening, Hospitalization, Disabling)
  Sender: FDA-Public Use
  Company Number: 238787

PATIENT
  Age: 90 Year
  Sex: Female
  Weight: 62 kg

DRUGS (4)
  1. RITUXAN [Suspect]
     Indication: WALDENSTROM'S MACROGLOBULINAEMIA
     Dosage: 375 NG/M2, 1/WEEK, INTRAVENOUS
     Route: 042
     Dates: start: 20030415
  2. PENTOSTATIN (PENTOSTATIN) [Concomitant]
  3. CHLORAMBUCIL (CHLORAMBUCIL) [Concomitant]
  4. CLONIDINE [Suspect]

REACTIONS (2)
  - DEMENTIA [None]
  - PROGRESSIVE MULTIFOCAL LEUKOENCEPHALOPATHY [None]
